FAERS Safety Report 24882037 (Version 1)
Quarter: 2025Q1

REPORT INFORMATION
  Report Type: Spontaneous
  Country: MX (occurrence: MX)
  Receive Date: 20250124
  Receipt Date: 20250124
  Transmission Date: 20250408
  Serious: Yes (Other)
  Sender: ROCHE
  Company Number: MX-ROCHE-10000185937

PATIENT
  Sex: Female

DRUGS (1)
  1. OCREVUS [Suspect]
     Active Substance: OCRELIZUMAB
     Indication: Multiple sclerosis
     Dosage: LAST DOSE WAS ON 14-JAN-2025.
     Route: 042
     Dates: start: 20231207

REACTIONS (2)
  - Multiple sclerosis [Unknown]
  - Cognitive disorder [Unknown]
